FAERS Safety Report 9061987 (Version 1)
Quarter: 2013Q1

REPORT INFORMATION
  Report Type: Spontaneous
  Country: US (occurrence: US)
  Receive Date: 20130204
  Receipt Date: 20130204
  Transmission Date: 20140127
  Serious: Yes (Other)
  Sender: FDA-Public Use
  Company Number: US-ELI_LILLY_AND_COMPANY-US201301008423

PATIENT
  Sex: Female

DRUGS (1)
  1. CYMBALTA [Suspect]
     Indication: SCIATICA
     Dosage: 60 MG, EACH EVENING

REACTIONS (6)
  - Concussion [Unknown]
  - Road traffic accident [Unknown]
  - Off label use [Unknown]
  - Joint injury [Unknown]
  - Post-traumatic neck syndrome [Unknown]
  - Memory impairment [Unknown]
